FAERS Safety Report 12556296 (Version 1)
Quarter: 2016Q3

REPORT INFORMATION
  Report Type: Spontaneous
  Country: US (occurrence: None)
  Receive Date: 20160713
  Receipt Date: 20160713
  Transmission Date: 20161109
  Serious: No
  Sender: FDA-Public Use
  Company Number: None

PATIENT
  Age: 58 Year
  Sex: Female
  Weight: 120.2 kg

DRUGS (1)
  1. HALDOL [Suspect]
     Active Substance: HALOPERIDOL
     Dates: start: 19160703

REACTIONS (6)
  - Dyspnoea [None]
  - Headache [None]
  - Rash [None]
  - Asthenia [None]
  - Cough [None]
  - Dry mouth [None]
